FAERS Safety Report 18381290 (Version 1)
Quarter: 2020Q4

REPORT INFORMATION
  Report Type: Spontaneous
  Country: CA (occurrence: CA)
  Receive Date: 20201014
  Receipt Date: 20201014
  Transmission Date: 20210114
  Serious: Yes (Other)
  Sender: FDA-Public Use
  Company Number: CA-SAMSUNG BIOEPIS-SB-2020-30862

PATIENT
  Age: 37 Year
  Sex: Male
  Weight: 72 kg

DRUGS (6)
  1. HYDROCORTISONE. [Concomitant]
     Active Substance: HYDROCORTISONE
     Indication: PREMEDICATION
     Route: 042
  2. BENADRYL [Concomitant]
     Active Substance: DIPHENHYDRAMINE HYDROCHLORIDE
     Indication: PREMEDICATION
     Route: 042
  3. 5-ASA [Concomitant]
     Active Substance: MESALAMINE
     Indication: PRODUCT USED FOR UNKNOWN INDICATION
     Dosage: UNKNOWN TABLET (ENTERIC COATED)
     Route: 065
  4. PREDNISONE. [Concomitant]
     Active Substance: PREDNISONE
     Indication: PRODUCT USED FOR UNKNOWN INDICATION
     Dosage: UNKNOWN
     Route: 065
  5. INFLIXIMAB [Suspect]
     Active Substance: INFLIXIMAB
     Indication: COLITIS ULCERATIVE
     Route: 042
  6. ACETAMINOPHEN. [Concomitant]
     Active Substance: ACETAMINOPHEN
     Indication: PREMEDICATION
     Route: 048

REACTIONS (14)
  - Dysphagia [Unknown]
  - Respiratory rate increased [Unknown]
  - Condition aggravated [Unknown]
  - Flushing [Unknown]
  - Throat tightness [Unknown]
  - Hyperhidrosis [Unknown]
  - Anxiety [Unknown]
  - Depression [Unknown]
  - Dyspnoea [Unknown]
  - Pruritus [Unknown]
  - Off label use [Unknown]
  - Rash erythematous [Unknown]
  - Heart rate abnormal [Unknown]
  - Impaired quality of life [Unknown]
